FAERS Safety Report 9220594 (Version 1)
Quarter: 2013Q2

REPORT INFORMATION
  Report Type: Spontaneous
  Country: US (occurrence: US)
  Receive Date: 20130409
  Receipt Date: 20130409
  Transmission Date: 20140414
  Serious: No
  Sender: FDA-Public Use
  Company Number: US-UPSHER-SMITH LABORATORIES, INC.-12001581

PATIENT
  Sex: Female

DRUGS (2)
  1. PREVALITE [Suspect]
     Indication: STEATORRHOEA
     Dosage: UNK
     Route: 048
  2. THYROID THERAPY [Suspect]
     Dosage: UNK
     Route: 048

REACTIONS (4)
  - Weight decreased [Unknown]
  - Drug interaction [Unknown]
  - Drug ineffective for unapproved indication [Unknown]
  - Condition aggravated [Unknown]
